FAERS Safety Report 15639010 (Version 1)
Quarter: 2018Q4

REPORT INFORMATION
  Report Type: Spontaneous
  Country: US (occurrence: US)
  Receive Date: 20181120
  Receipt Date: 20181120
  Transmission Date: 20190205
  Serious: No
  Sender: FDA-Public Use
  Company Number: US-JNJFOC-20180203520

PATIENT
  Age: 74 Year
  Sex: Male

DRUGS (9)
  1. DORZOLAMIDE [Concomitant]
     Active Substance: DORZOLAMIDE
  2. CYANOCOBALAMIN. [Concomitant]
     Active Substance: CYANOCOBALAMIN
  3. ATENOLOL. [Concomitant]
     Active Substance: ATENOLOL
  4. TRAVATAN Z [Concomitant]
     Active Substance: TRAVOPROST
  5. SIMVASTATIN. [Concomitant]
     Active Substance: SIMVASTATIN
  6. ELIQUIS [Concomitant]
     Active Substance: APIXABAN
  7. METFORMIN [Concomitant]
     Active Substance: METFORMIN HYDROCHLORIDE
  8. IMBRUVICA [Suspect]
     Active Substance: IBRUTINIB
     Indication: MARGINAL ZONE LYMPHOMA
     Dosage: 560 MG, QD
     Route: 048
     Dates: start: 20170602
  9. GLIPIZIDE. [Concomitant]
     Active Substance: GLIPIZIDE

REACTIONS (3)
  - Gout [Unknown]
  - Urinary tract infection [Not Recovered/Not Resolved]
  - Haematuria [Unknown]

NARRATIVE: CASE EVENT DATE: 201801
